FAERS Safety Report 9303364 (Version 1)
Quarter: 2013Q2

REPORT INFORMATION
  Report Type: Spontaneous
  Country: US (occurrence: None)
  Receive Date: 20130521
  Receipt Date: 20130521
  Transmission Date: 20140414
  Serious: No
  Sender: FDA-Public Use
  Company Number: None

PATIENT
  Age: 82 Year
  Sex: Female
  Weight: 74.84 kg

DRUGS (1)
  1. AMLODIPINE-BESYLATE [Suspect]
     Indication: HYPERTENSION
     Dosage: 1 TABLET, 2X DAY

REACTIONS (7)
  - Joint swelling [None]
  - Local swelling [None]
  - Headache [None]
  - Vision blurred [None]
  - Chest pain [None]
  - Muscle spasms [None]
  - Product substitution issue [None]
